FAERS Safety Report 20968108 (Version 1)
Quarter: 2022Q2

REPORT INFORMATION
  Report Type: Other
  Country: GB (occurrence: GB)
  Receive Date: 20220616
  Receipt Date: 20220616
  Transmission Date: 20220721
  Serious: Yes (Hospitalization)
  Sender: FDA-Public Use
  Company Number: GB-MACLEODS PHARMA UK LTD-MAC2022036093

PATIENT

DRUGS (3)
  1. ARIPIPRAZOLE [Suspect]
     Active Substance: ARIPIPRAZOLE
     Indication: Schizophrenia
     Dosage: UNK
     Route: 065
  2. CLOZAPINE [Suspect]
     Active Substance: CLOZAPINE
     Indication: Schizophrenia
     Dosage: UNK
     Route: 048
  3. CLOZAPINE [Suspect]
     Active Substance: CLOZAPINE
     Dosage: UNK(AT NIGHT)
     Route: 048
     Dates: start: 20220525

REACTIONS (4)
  - Seizure [Unknown]
  - Product monitoring error [Not Recovered/Not Resolved]
  - Depressed mood [Unknown]
  - Emotional distress [Unknown]

NARRATIVE: CASE EVENT DATE: 20220525
